FAERS Safety Report 5281979-5 (Version None)
Quarter: 2007Q1

REPORT INFORMATION
  Report Type: 
  Country: None (occurrence: None)
  Receive Date: 20070326
  Receipt Date: 20070313
  Transmission Date: 20070707
  Serious: Yes (Other)
  Sender: FDA-Public Use
  Company Number: GXKR2007JP02501

PATIENT
  Age: 66 Year
  Sex: Female

DRUGS (4)
  1. CYTARABINE [Suspect]
     Indication: LEUKAEMIA
     Dosage: 40 MG, INTRATHECAL
     Route: 037
  2. METHOTREXATE [Suspect]
     Indication: LEUKAEMIA
     Dosage: 15 MG, INTRATHECAL
     Route: 037
  3. PREDNISOLONE [Suspect]
     Indication: LEUKAEMIA
     Dosage: 10 MG, INTRATHECAL
     Route: 037
  4. CHEMOTHERAPEUTICS,OTHER (CHEMOTHERAPEUTICS,OTHER) [Concomitant]

REACTIONS (3)
  - BLOOD OSMOLARITY ABNORMAL [None]
  - DEPRESSED LEVEL OF CONSCIOUSNESS [None]
  - INAPPROPRIATE ANTIDIURETIC HORMONE SECRETION [None]
